FAERS Safety Report 4614818-3 (Version None)
Quarter: 2005Q1

REPORT INFORMATION
  Report Type: 
  Country: None (occurrence: None)
  Receive Date: 20050322
  Receipt Date: 20050307
  Transmission Date: 20050727
  Serious: Yes (Life-Threatening, Hospitalization)
  Sender: FDA-Public Use
  Company Number: PHEH2005US02821

PATIENT
  Age: 55 Year
  Sex: Female
  Weight: 88 kg

DRUGS (4)
  1. RITALIN [Suspect]
  2. BUDESONIDE [Concomitant]
     Indication: CROHN'S DISEASE
  3. PREDNISONE [Concomitant]
     Indication: CROHN'S DISEASE
  4. REMICADE [Suspect]
     Indication: CROHN'S DISEASE
     Route: 017

REACTIONS (16)
  - ABSCESS LIMB [None]
  - AMPUTATION [None]
  - CELLULITIS [None]
  - CONFUSIONAL STATE [None]
  - DEPRESSED LEVEL OF CONSCIOUSNESS [None]
  - DIZZINESS [None]
  - ERYTHEMA [None]
  - FALL [None]
  - HALLUCINATION [None]
  - INFLAMMATION [None]
  - LEG AMPUTATION [None]
  - MENTAL STATUS CHANGES [None]
  - OSTEOMYELITIS [None]
  - SKIN ULCER [None]
  - SLEEP APNOEA SYNDROME [None]
  - SOMNOLENCE [None]
